FAERS Safety Report 4793876-X (Version None)
Quarter: 2005Q4

REPORT INFORMATION
  Report Type: 
  Country: None (occurrence: None)
  Receive Date: 20051011
  Receipt Date: 20050929
  Transmission Date: 20060501
  Serious: Yes (Hospitalization)
  Sender: FDA-Public Use
  Company Number: 2005CG01666

PATIENT
  Age: 74 Year
  Sex: Female

DRUGS (3)
  1. CRESTOR [Suspect]
     Route: 048
     Dates: start: 20050101, end: 20050101
  2. AMLOR [Suspect]
     Route: 048
     Dates: start: 20050101, end: 20050101
  3. CORDARONE [Suspect]
     Indication: ARRHYTHMIA
     Route: 048
     Dates: start: 20050101, end: 20050101

REACTIONS (3)
  - LEUKOCYTOCLASTIC VASCULITIS [None]
  - THERAPY NON-RESPONDER [None]
  - VASCULITIS NECROTISING [None]
